FAERS Safety Report 12568791 (Version 1)
Quarter: 2016Q3

REPORT INFORMATION
  Report Type: Spontaneous
  Country: US (occurrence: US)
  Receive Date: 20160719
  Receipt Date: 20160719
  Transmission Date: 20161109
  Serious: No
  Sender: FDA-Public Use
  Company Number: US-ASTRAZENECA-2016SE74479

PATIENT
  Sex: Male

DRUGS (2)
  1. XANAX [Interacting]
     Active Substance: ALPRAZOLAM
     Indication: PARKINSON^S DISEASE
     Route: 065
  2. SEROQUEL [Suspect]
     Active Substance: QUETIAPINE FUMARATE
     Route: 048

REACTIONS (1)
  - Drug interaction [Unknown]
